FAERS Safety Report 4654726-5 (Version None)
Quarter: 2005Q2

REPORT INFORMATION
  Report Type: 
  Country: None (occurrence: None)
  Receive Date: 20050506
  Receipt Date: 20050503
  Transmission Date: 20051028
  Serious: Yes (Disabling)
  Sender: FDA-Public Use
  Company Number: 200511163EU

PATIENT
  Age: 11 Year
  Sex: Male

DRUGS (2)
  1. LANTUS [Suspect]
     Indication: DIABETES MELLITUS INSULIN-DEPENDENT
     Dosage: DOSE: 10-20
     Route: 058
     Dates: start: 20030901
  2. NOVORAPID [Concomitant]
     Indication: DIABETES MELLITUS INSULIN-DEPENDENT
     Route: 058

REACTIONS (3)
  - MUSCLE CONTRACTURE [None]
  - SOFT TISSUE DISORDER [None]
  - TENDON DISORDER [None]
